FAERS Safety Report 8160057-1 (Version None)
Quarter: 2012Q1

REPORT INFORMATION
  Report Type: 
  Country: None (occurrence: None)
  Receive Date: 20120223
  Receipt Date: 20120214
  Transmission Date: 20120608
  Serious: Yes (Hospitalization)
  Sender: FDA-Public Use
  Company Number: PHHO2012US002775

PATIENT
  Sex: Male
  Weight: 84.6 kg

DRUGS (20)
  1. LDE 225 [Suspect]
     Indication: PANCREATIC CARCINOMA
     Dosage: 200 MG, QD
     Route: 048
     Dates: start: 20111216, end: 20120213
  2. ZOFRAN [Concomitant]
     Dosage: 8 MG, Q8-12H PRN
  3. IRINOTECAN HCL [Suspect]
     Dosage: UNK
     Route: 042
     Dates: start: 20120206
  4. OXALIPLATIN [Suspect]
     Indication: ADENOCARCINOMA PANCREAS
     Dosage: 65 MG/M2, Q 2 WEEKS
     Route: 042
     Dates: start: 20111216, end: 20120203
  5. ULORIC [Concomitant]
     Dosage: 40 MG, QD
     Route: 048
  6. IRINOTECAN HCL [Suspect]
     Indication: ADENOCARCINOMA PANCREAS
     Dosage: 150 MG/M2, Q 2 WEEKS
     Route: 042
     Dates: start: 20111216, end: 20120203
  7. OXALIPLATIN [Suspect]
     Dosage: UNK
     Route: 042
     Dates: start: 20120206
  8. ASPIRIN [Concomitant]
     Dosage: 81 MG, QD
     Route: 048
  9. LEUCOVORIN CALCIUM [Suspect]
     Indication: ADENOCARCINOMA PANCREAS
     Dosage: 400 MG/M2 X46 HOURS Q2 WEEKS
     Route: 042
     Dates: start: 20111216, end: 20120203
  10. ATIVAN [Concomitant]
  11. DECADRON [Concomitant]
  12. DIOVAN [Concomitant]
     Dosage: 80 MG, QD
     Route: 048
  13. INDOMETHACIN [Concomitant]
     Dosage: 50 MG, TID
     Route: 048
  14. LOMOTIL [Concomitant]
     Dosage: 2 DF, PRN
     Route: 048
  15. ZYPREXA [Concomitant]
     Dosage: 2.5 MG, QD
     Route: 048
  16. CAMPHORATED TINCTURE OF OPIUM [Concomitant]
     Dosage: 0.6 ML Q6H, PRN
  17. REMERON [Concomitant]
     Dosage: 30 MG, QHS
     Route: 048
  18. FLUOROURACIL [Suspect]
     Indication: ADENOCARCINOMA PANCREAS
     Dosage: 1200 MG/M2 Q 2 WEEKS
     Route: 042
     Dates: start: 20111216, end: 20120205
  19. COMPAZINE [Concomitant]
     Dosage: 10 MG,Q6H PRN
     Route: 048
  20. OMEPRAZOLE [Concomitant]
     Dosage: 20 MG, BID
     Route: 048

REACTIONS (3)
  - HYPOTENSION [None]
  - DEHYDRATION [None]
  - DIARRHOEA [None]
